FAERS Safety Report 26011976 (Version 1)
Quarter: 2025Q4

REPORT INFORMATION
  Report Type: Spontaneous
  Country: US (occurrence: None)
  Receive Date: 20251107
  Receipt Date: 20251107
  Transmission Date: 20260118
  Serious: Yes (Hospitalization)
  Sender: FDA-CTU
  Company Number: None

PATIENT

DRUGS (11)
  1. ALYFTREK [Suspect]
     Active Substance: DEUTIVACAFTOR\TEZACAFTOR\VANZACAFTOR
     Indication: Cystic fibrosis
     Dosage: FREQUENCY : DAILY;?
     Route: 048
     Dates: start: 20250827
  2. ALBUTEROL SULFATE [Concomitant]
     Active Substance: ALBUTEROL SULFATE
  3. ALENDRONATE SOL 70/75ML [Concomitant]
  4. DDROPS LIQ [Concomitant]
  5. ELIQUIS [Concomitant]
     Active Substance: APIXABAN
  6. FERROUS SULF DRO 15MG/ML [Concomitant]
  7. LACOSAMIDE SOL 10MG/ML [Concomitant]
  8. LEVETIRACETAM [Concomitant]
     Active Substance: LEVETIRACETAM
  9. LORATADINE TAB 10MG [Concomitant]
  10. NAYZILAM SPR 5MG [Concomitant]
  11. TIZANIDINE HYDROCHLORIDE [Concomitant]
     Active Substance: TIZANIDINE HYDROCHLORIDE

REACTIONS (1)
  - Localised infection [None]
